FAERS Safety Report 13603140 (Version 1)
Quarter: 2017Q2

REPORT INFORMATION
  Report Type: Spontaneous
  Country: CH (occurrence: CH)
  Receive Date: 20170601
  Receipt Date: 20170601
  Transmission Date: 20170830
  Serious: Yes (Hospitalization, Other)
  Sender: FDA-Public Use
  Company Number: CH-MYLANLABS-16X-151-1266922-00

PATIENT

DRUGS (22)
  1. PREDNISON [Concomitant]
     Active Substance: PREDNISONE
     Indication: PRODUCT USED FOR UNKNOWN INDICATION
     Dosage: UNK
     Route: 048
  2. VOLTAREN [Suspect]
     Active Substance: DICLOFENAC SODIUM
     Indication: PRODUCT USED FOR UNKNOWN INDICATION
     Dosage: 75MILLIGRAMTOTAL
     Route: 040
     Dates: start: 20160831, end: 20160831
  3. DEXAMETHASON [Concomitant]
     Active Substance: DEXAMETHASONE
     Indication: PRODUCT USED FOR UNKNOWN INDICATION
     Dosage: 8MILLIGRAMTOTAL
     Route: 040
     Dates: start: 20160831, end: 20160831
  4. TEMESTA EXPIDET [Concomitant]
     Active Substance: LORAZEPAM
     Indication: PRODUCT USED FOR UNKNOWN INDICATION
     Dosage: 5MILLIGRAM2X
     Route: 060
     Dates: start: 20160831, end: 20160831
  5. MOMETASONE [Concomitant]
     Active Substance: MOMETASONE
     Indication: PRODUCT USED FOR UNKNOWN INDICATION
     Dosage: UNK
     Dates: start: 20160920
  6. BRUFEN [Suspect]
     Active Substance: IBUPROFEN
     Indication: PRODUCT USED FOR UNKNOWN INDICATION
     Dosage: 400+600MG
     Route: 048
     Dates: start: 20160831, end: 20160831
  7. CEFUROXIME. [Suspect]
     Active Substance: CEFUROXIME
     Indication: PROPHYLAXIS
     Dosage: 1.5GRAMTOTAL
     Route: 040
     Dates: start: 20160831, end: 20160831
  8. TARGIN [Suspect]
     Active Substance: NALOXONE HYDROCHLORIDE\OXYCODONE HYDROCHLORIDE
     Indication: PRODUCT USED FOR UNKNOWN INDICATION
     Dosage: 1DOSAGE FORMSPRN
     Route: 048
     Dates: start: 20160831, end: 20160904
  9. ROCURONIUM [Concomitant]
     Active Substance: ROCURONIUM BROMIDE
     Indication: PRODUCT USED FOR UNKNOWN INDICATION
     Dosage: 50MILLIGRAMTOTAL
     Route: 041
     Dates: start: 20160831, end: 20160831
  10. DERMOVAT [Concomitant]
     Active Substance: CLOBETASOL
     Indication: PRODUCT USED FOR UNKNOWN INDICATION
     Dosage: UNK
     Route: 061
     Dates: start: 20160916
  11. EPHEDRIN [Concomitant]
     Active Substance: EPHEDRINE HYDROCHLORIDE
     Indication: PRODUCT USED FOR UNKNOWN INDICATION
     Dosage: 5+10MG
     Route: 041
     Dates: start: 20160831, end: 20160831
  12. NEOCITRAN [Concomitant]
     Active Substance: ACETANILIDE\ASCORBIC ACID\PHENIRAMINE MALEATE\PHENYLEPHRINE HYDROCHLORIDE
     Indication: VIRAL UPPER RESPIRATORY TRACT INFECTION
     Dosage: 1SACHETQD
     Dates: start: 20160906, end: 20160907
  13. NEXIUM [Suspect]
     Active Substance: ESOMEPRAZOLE MAGNESIUM
     Indication: PRODUCT USED FOR UNKNOWN INDICATION
     Dosage: 40MILLIGRAMTOTAL
     Route: 048
     Dates: start: 20160831, end: 20160831
  14. ZOFRAN [Concomitant]
     Active Substance: ONDANSETRON HYDROCHLORIDE
     Indication: PRODUCT USED FOR UNKNOWN INDICATION
     Dosage: 4MILLIGRAMTOTAL
     Dates: start: 20160831, end: 20160831
  15. PROPOFOL. [Concomitant]
     Active Substance: PROPOFOL
     Indication: PRODUCT USED FOR UNKNOWN INDICATION
     Dosage: 200MILLIGRAMTOTAL
     Route: 041
     Dates: start: 20160831, end: 20160831
  16. VANCOMYCIN [Concomitant]
     Active Substance: VANCOMYCIN
     Indication: PRODUCT USED FOR UNKNOWN INDICATION
     Dosage: 2GRAMBID
     Route: 048
     Dates: start: 20160908, end: 20160910
  17. TRAMAL [Concomitant]
     Active Substance: TRAMADOL
     Dosage: 50MILLIGRAMTOTAL
     Dates: start: 20160901, end: 20160901
  18. BUPIVACAIN + FENTANYL COMP [Concomitant]
     Active Substance: BUPIVACAINE HYDROCHLORIDE\FENTANYL CITRATE
     Indication: PRODUCT USED FOR UNKNOWN INDICATION
     Dosage: 5+10 GRAM OF FENTANYL; UNKNOWN
     Route: 008
     Dates: start: 20160831, end: 20160831
  19. AZTREONAM. [Concomitant]
     Active Substance: AZTREONAM
     Indication: PRODUCT USED FOR UNKNOWN INDICATION
     Dosage: 6GRAMTID
     Route: 048
     Dates: start: 20160908, end: 20160910
  20. METHYLPREDNISOLON [Concomitant]
     Active Substance: METHYLPREDNISOLONE
     Indication: PRODUCT USED FOR UNKNOWN INDICATION
  21. DAFALGAN [Suspect]
     Active Substance: ACETAMINOPHEN
     Indication: PRODUCT USED FOR UNKNOWN INDICATION
     Dosage: 2GRAM2X
     Route: 048
     Dates: start: 20160831, end: 20160831
  22. TRAMAL [Concomitant]
     Active Substance: TRAMADOL
     Indication: PRODUCT USED FOR UNKNOWN INDICATION
     Dosage: 50MILLIGRAMTOTAL
     Route: 048
     Dates: start: 20160901, end: 20160901

REACTIONS (2)
  - Drug reaction with eosinophilia and systemic symptoms [Recovered/Resolved]
  - Acute generalised exanthematous pustulosis [Recovered/Resolved]

NARRATIVE: CASE EVENT DATE: 201609
